FAERS Safety Report 6919851-4 (Version None)
Quarter: 2010Q3

REPORT INFORMATION
  Report Type: 
  Country: None (occurrence: None)
  Receive Date: 20100810
  Receipt Date: 20100810
  Transmission Date: 20110219
  Serious: Yes (Disabling)
  Sender: FDA-Public Use
  Company Number: None

PATIENT
  Age: 17 Year
  Sex: Male
  Weight: 86.1834 kg

DRUGS (1)
  1. ACCUTANE [Suspect]
     Dates: start: 19980720, end: 19990120

REACTIONS (3)
  - DRY MOUTH [None]
  - ERYTHEMA [None]
  - UNEVALUABLE EVENT [None]
